FAERS Safety Report 9795099 (Version 2)
Quarter: 2014Q1

REPORT INFORMATION
  Report Type: Spontaneous
  Country: US (occurrence: US)
  Receive Date: 20140103
  Receipt Date: 20140214
  Transmission Date: 20141002
  Serious: Yes (Other)
  Sender: FDA-Public Use
  Company Number: US-AMGEN-USASP2013091333

PATIENT
  Age: 58 Year
  Sex: Female

DRUGS (2)
  1. ENBREL [Suspect]
     Indication: RHEUMATOID ARTHRITIS
     Dosage: 50 MG, QWK
     Route: 065
     Dates: start: 2008
  2. ENBREL [Suspect]
     Dosage: UNK
     Route: 065

REACTIONS (4)
  - Spinal operation [Unknown]
  - Condition aggravated [Unknown]
  - Incorrect dose administered [Recovered/Resolved]
  - Injection site pain [Unknown]
